FAERS Safety Report 21300996 (Version 5)
Quarter: 2022Q4

REPORT INFORMATION
  Report Type: Spontaneous
  Country: GB (occurrence: GB)
  Receive Date: 20220907
  Receipt Date: 20221012
  Transmission Date: 20230112
  Serious: Yes (Death, Hospitalization, Congenital Anomaly, Other)
  Sender: FDA-Public Use
  Company Number: GB-GILEAD-2018-0347708

PATIENT
  Age: 3 Month
  Sex: Male

DRUGS (76)
  1. METFORMIN [Suspect]
     Active Substance: METFORMIN HYDROCHLORIDE
     Indication: Foetal exposure during pregnancy
     Dosage: UNK, (MATERNAL DOSE: UNKNOWN)
     Route: 064
  2. METFORMIN [Suspect]
     Active Substance: METFORMIN HYDROCHLORIDE
     Dosage: UNK, (MATERNAL DOSE: UNKNOWN)
     Route: 064
  3. METFORMIN [Suspect]
     Active Substance: METFORMIN HYDROCHLORIDE
     Dosage: UNK, (MATERNAL DOSE: 400 MG, QD)
     Route: 064
  4. METFORMIN [Suspect]
     Active Substance: METFORMIN HYDROCHLORIDE
     Dosage: UNK, (MATERNAL DOSE: UNKNOWN)
     Route: 064
  5. METFORMIN [Suspect]
     Active Substance: METFORMIN HYDROCHLORIDE
     Dosage: UNK, (MATERNAL DOSE: UNKNOWN)
     Route: 064
  6. EFAVIRENZ [Suspect]
     Active Substance: EFAVIRENZ
     Indication: Foetal exposure during pregnancy
     Dosage: MATERNAL DOSE: 1 DOSAGE FORM, QD
     Route: 064
     Dates: start: 20171006
  7. EFAVIRENZ [Suspect]
     Active Substance: EFAVIRENZ
     Dosage: MATERNAL DOSE: 1 DOSAGE FORM, QD
     Route: 064
  8. EFAVIRENZ [Suspect]
     Active Substance: EFAVIRENZ
     Dosage: 1 DOSAGE FORM, QD
     Route: 064
  9. EFAVIRENZ [Suspect]
     Active Substance: EFAVIRENZ
     Dosage: UNK, MATERNAL DOSE: 1 UG/LITRE, QD (1 TABLET/CAPSULE)
     Route: 065
     Dates: start: 20171006
  10. EFAVIRENZ [Suspect]
     Active Substance: EFAVIRENZ
     Dosage: 1 DOSAGE FORM, QD,  (1 TABLET/CAPSULE, DAILY)
     Route: 064
  11. EFAVIRENZ [Suspect]
     Active Substance: EFAVIRENZ
     Dosage: MATERNAL DOSE: 1 DOSAGE FORM, QD
     Route: 064
     Dates: start: 20171006
  12. EFAVIRENZ [Suspect]
     Active Substance: EFAVIRENZ
     Dosage: MATERNAL DOSE: 1 DOSAGE FORM, QD
     Route: 064
     Dates: start: 20171006
  13. FOLIC ACID [Suspect]
     Active Substance: FOLIC ACID
     Indication: Foetal exposure during pregnancy
     Dosage: UNK, MATERNAL DOSE: UNK
     Route: 064
  14. FOLIC ACID [Suspect]
     Active Substance: FOLIC ACID
     Dosage: MATERNAL DOSE:UNK
     Route: 065
  15. FOLIC ACID [Suspect]
     Active Substance: FOLIC ACID
     Dosage: 1 DOSAGE FORM, QD, MATERNAL DOSE
     Route: 064
  16. LABETALOL [Suspect]
     Active Substance: LABETALOL\LABETALOL HYDROCHLORIDE
     Indication: Foetal exposure during pregnancy
     Dosage: 300 MG, (MATERNAL DOSE: 300 MG)
     Route: 064
     Dates: start: 20090101, end: 20100610
  17. LABETALOL [Suspect]
     Active Substance: LABETALOL\LABETALOL HYDROCHLORIDE
     Dosage: UNK
     Route: 064
  18. LABETALOL [Suspect]
     Active Substance: LABETALOL\LABETALOL HYDROCHLORIDE
     Dosage: UNK, (MATERNAL DOSE: 300 MG)
     Route: 064
     Dates: start: 20090101, end: 20100610
  19. TRUVADA [Suspect]
     Active Substance: EMTRICITABINE\TENOFOVIR DISOPROXIL FUMARATE
     Indication: Foetal exposure during pregnancy
     Dosage: 1 DOSAGE FORM, QD, (MATERNAL DOSE)
     Route: 064
  20. TRUVADA [Suspect]
     Active Substance: EMTRICITABINE\TENOFOVIR DISOPROXIL FUMARATE
     Dosage: 1 DOSAGE FORM, QD, MATERNAL DOSE  (THERAPY START DATE: 06-OCT-2017)
     Route: 064
  21. TRUVADA [Suspect]
     Active Substance: EMTRICITABINE\TENOFOVIR DISOPROXIL FUMARATE
     Dosage: 1 DOSAGE FORM, QD,  (MATERNAL DOSE)
     Route: 064
     Dates: start: 20171006
  22. TRUVADA [Suspect]
     Active Substance: EMTRICITABINE\TENOFOVIR DISOPROXIL FUMARATE
     Dosage: 1 DOSAGE FORM, QD,  (MATERNAL DOSE)
     Route: 064
  23. INSULIN ASPART [Suspect]
     Active Substance: INSULIN ASPART
     Indication: Foetal exposure during pregnancy
     Dosage: UNK, (MATERNAL DOSE: UNKNOWN)
     Route: 064
  24. INSULIN ASPART [Suspect]
     Active Substance: INSULIN ASPART
     Dosage: UNK, (MATERNAL DOSE: UNKNOWN)
     Route: 064
  25. EMTRICITABINE [Suspect]
     Active Substance: EMTRICITABINE
     Indication: Foetal exposure during pregnancy
     Dosage: UNK, (MATERNAL DOSE: 1 DOSAGE FORM, QD, (1 TABLET/CAPSULE, QD))
     Route: 064
     Dates: start: 20171006
  26. EMTRICITABINE [Suspect]
     Active Substance: EMTRICITABINE
     Dosage: UNK, (MATERNAL DOSE: 1 DOSAGE FORM, QD)
     Route: 064
     Dates: start: 20171006
  27. EMTRICITABINE [Suspect]
     Active Substance: EMTRICITABINE
     Dosage: MATERNAL DOSE: 1 DOSAGE FORM, QD
     Route: 064
  28. EMTRICITABINE [Suspect]
     Active Substance: EMTRICITABINE
     Dosage: UNK, (MATERNAL DOSE: 1 DOSAGE FORM, QD)
     Route: 064
  29. EMTRICITABINE [Suspect]
     Active Substance: EMTRICITABINE
     Dosage: 1 DOSAGE FORM, QD, (1 TABLET/CAPSULE, QD))
     Route: 064
     Dates: start: 20171006
  30. FOLATE SODIUM [Suspect]
     Active Substance: FOLATE SODIUM
     Indication: Foetal exposure during pregnancy
     Dosage: UNK, (MATERNAL DOSE: UNKNOWN)
     Route: 064
  31. FOLATE SODIUM [Suspect]
     Active Substance: FOLATE SODIUM
     Dosage: UNK
     Route: 064
  32. FOLATE SODIUM [Suspect]
     Active Substance: FOLATE SODIUM
     Dosage: MATERNAL DOSE: UNK
     Route: 064
  33. KALETRA [Suspect]
     Active Substance: LOPINAVIR\RITONAVIR
     Indication: Foetal exposure during pregnancy
     Dosage: UNK, (MATERNAL DOSE: UNKNOWN)
     Route: 064
     Dates: start: 20090101
  34. KALETRA [Suspect]
     Active Substance: LOPINAVIR\RITONAVIR
     Dosage: UNK, (MATERNAL DOSE: UNKNOWN)
     Route: 064
  35. TENOFOVIR [Suspect]
     Active Substance: TENOFOVIR
     Indication: Foetal exposure during pregnancy
     Dosage: UNK, (MATERNAL DOSE: 300 MG, QD)
     Route: 064
     Dates: start: 20100610
  36. TENOFOVIR [Suspect]
     Active Substance: TENOFOVIR
     Dosage: MATERNAL DOSE: 300 MG, QD
     Route: 064
     Dates: start: 20100610
  37. TENOFOVIR [Suspect]
     Active Substance: TENOFOVIR
     Dosage: UNK
     Route: 065
     Dates: start: 20100610
  38. LAMIVUDINE [Suspect]
     Active Substance: LAMIVUDINE
     Indication: Foetal exposure during pregnancy
     Dosage: 300 MG, QD
     Route: 064
     Dates: start: 20090101, end: 20100610
  39. LAMIVUDINE [Suspect]
     Active Substance: LAMIVUDINE
     Dosage: 300 MG, QD, (MATERNAL DOSE: 300 MG ORAL  )
     Route: 064
     Dates: start: 20090101, end: 20100610
  40. ISENTRESS [Suspect]
     Active Substance: RALTEGRAVIR POTASSIUM
     Indication: Foetal exposure during pregnancy
     Dosage: UNK, (MATERNAL DOSE: 3200 MG, QD (800 MILLIGRAM, QID))
     Route: 064
     Dates: start: 20100610
  41. ISENTRESS [Suspect]
     Active Substance: RALTEGRAVIR POTASSIUM
     Dosage: 3200 MG, QD, (800 MILLIGRAM, QID))
     Route: 064
     Dates: start: 20100610
  42. ISENTRESS [Suspect]
     Active Substance: RALTEGRAVIR POTASSIUM
     Dosage: MATERNAL DOSE: 800 MG, Q6H
     Route: 064
     Dates: start: 20100610
  43. ISENTRESS [Suspect]
     Active Substance: RALTEGRAVIR POTASSIUM
     Dosage: UNK, (MATERNAL DOSE: 3200 MG, QD (800 MILLIGRAM, QID))
     Route: 064
     Dates: start: 20100610
  44. LOPINAVIR\RITONAVIR [Suspect]
     Active Substance: LOPINAVIR\RITONAVIR
     Indication: Foetal exposure during pregnancy
     Dosage: UNK, (MATERNAL DOSE: UNK)
     Route: 064
  45. LOPINAVIR\RITONAVIR [Suspect]
     Active Substance: LOPINAVIR\RITONAVIR
     Dosage: UNK, (MATERNAL DOSE: UNK)
     Route: 064
     Dates: start: 20100610
  46. LOPINAVIR\RITONAVIR [Suspect]
     Active Substance: LOPINAVIR\RITONAVIR
     Dosage: UNK, (MATERNAL DOSE: UNK)
     Route: 064
     Dates: start: 20100610
  47. ZIDOVUDINE [Suspect]
     Active Substance: ZIDOVUDINE
     Indication: Foetal exposure during pregnancy
     Dosage: 600 MG, QD, (MATERNAL DOSE: 600 MG, QD)
     Route: 064
     Dates: start: 20090110, end: 20100610
  48. ZIDOVUDINE [Suspect]
     Active Substance: ZIDOVUDINE
     Dosage: 600 MILLIGRAM, QD
     Route: 064
  49. ZIDOVUDINE [Suspect]
     Active Substance: ZIDOVUDINE
     Dosage: UNK, (MATERNAL DOSE: 600 MG, QD )
     Route: 064
     Dates: start: 20090110, end: 20100610
  50. ZIDOVUDINE [Suspect]
     Active Substance: ZIDOVUDINE
     Dosage: MATERNAL DOSE: 800 MG, QD
     Route: 064
     Dates: start: 20090110, end: 20090110
  51. ZIDOVUDINE [Suspect]
     Active Substance: ZIDOVUDINE
     Dosage: UNK, (MATERNAL DOSE: 800 MG, QD)
     Route: 064
     Dates: start: 20090110, end: 20100610
  52. NEVIRAPINE [Suspect]
     Active Substance: NEVIRAPINE
     Indication: Foetal exposure during pregnancy
     Dosage: 400 MG, QD, (MATERNAL DOSE:400 MG, QD))
     Route: 064
     Dates: start: 20090101, end: 20100610
  53. NEVIRAPINE [Suspect]
     Active Substance: NEVIRAPINE
     Dosage: UNK, MATERNAL EXPOSURE: 400MG, QD
     Route: 064
     Dates: start: 20090101, end: 20100610
  54. TENOFOVIR DISOPROXIL FUMARATE [Suspect]
     Active Substance: TENOFOVIR DISOPROXIL FUMARATE
     Indication: Foetal exposure during pregnancy
     Dosage: UNK, MATERNAL DOSE: 1 UG/LITRE, QD (1 TABLET/CAPSULE) 1 DOSAGE FORM
     Route: 064
     Dates: start: 20171006
  55. TENOFOVIR DISOPROXIL FUMARATE [Suspect]
     Active Substance: TENOFOVIR DISOPROXIL FUMARATE
     Dosage: UNK, (MATERNAL DOSE: 1 DOSAGE FORM, QD)
     Route: 064
  56. TENOFOVIR DISOPROXIL FUMARATE [Suspect]
     Active Substance: TENOFOVIR DISOPROXIL FUMARATE
     Dosage: 1 DOSAGE FORM, QD, (THERAPY START DATE 05-FEB-2018)
     Route: 065
  57. TENOFOVIR DISOPROXIL FUMARATE [Suspect]
     Active Substance: TENOFOVIR DISOPROXIL FUMARATE
     Dosage: 1 DOSAGE FORM, QD, (1 TABLET/CAPSULE, DAILY)
     Route: 064
  58. TENOFOVIR DISOPROXIL FUMARATE [Suspect]
     Active Substance: TENOFOVIR DISOPROXIL FUMARATE
     Dosage: MATERNAL DOSE: 1 DOSAGE FORM, QD
     Route: 064
  59. TENOFOVIR DISOPROXIL FUMARATE [Suspect]
     Active Substance: TENOFOVIR DISOPROXIL FUMARATE
     Dosage: MATERNAL DOSE: 1 DOSAGE FORM, QD
     Route: 065
  60. TENOFOVIR DISOPROXIL FUMARATE [Suspect]
     Active Substance: TENOFOVIR DISOPROXIL FUMARATE
     Dosage: MATERNAL DOSE:1 DOSAGE FORM, QD, (THERAPY DATE 06-OCT-2017)
     Route: 065
  61. VITAMIN B12 [Suspect]
     Active Substance: CYANOCOBALAMIN
     Indication: Foetal exposure during pregnancy
     Dosage: UNK, (MATERNAL DOSE: UNK)
     Route: 064
     Dates: start: 20100610
  62. VITAMIN B12 [Suspect]
     Active Substance: CYANOCOBALAMIN
     Dosage: UNK, (MATERNAL DOSE: UNK)
     Route: 064
     Dates: start: 20090110, end: 20100610
  63. INSULIN ASPART [Suspect]
     Active Substance: INSULIN ASPART
     Indication: Foetal exposure during pregnancy
     Dosage: UNK, (MATERNAL DOSE: UNKNOWN)
     Route: 064
  64. INSULIN ASPART [Suspect]
     Active Substance: INSULIN ASPART
     Dosage: UNK
     Route: 064
  65. RITONAVIR [Suspect]
     Active Substance: RITONAVIR
     Indication: Foetal exposure during pregnancy
     Dosage: UNK, MATERNAL DOSE: UNK
     Route: 064
  66. RITONAVIR [Suspect]
     Active Substance: RITONAVIR
     Dosage: UNK, MATERNAL DOSE: UNK
     Route: 065
  67. EFAVIRENZ [Suspect]
     Active Substance: EFAVIRENZ
     Indication: Foetal exposure during pregnancy
     Dosage: UNK, (MATERNAL DOSE: 1 DOSAGE FORM, QD, (1 TABLET/CAPSULE, DAILY))
     Route: 064
  68. EFAVIRENZ [Suspect]
     Active Substance: EFAVIRENZ
     Dosage: 1 DOSAGE FORM, QD, (MATERNAL DOSE: 1 DOSAGE FORM, QD)
     Route: 064
  69. EFAVIRENZ [Suspect]
     Active Substance: EFAVIRENZ
     Dosage: 1 DOSAGE FORM, QD, (MATERNAL DOSE: 1 DOSAGE FORM, QD; 1 TABLET/CAPSULE,DAILY)
     Route: 064
  70. EFAVIRENZ [Suspect]
     Active Substance: EFAVIRENZ
     Dosage: UNK, MATERNAL DOSE: 1 UG/LITER, QD (1TABLET,CAPSULE)
     Route: 064
  71. LOPINAVIR [Suspect]
     Active Substance: LOPINAVIR
     Indication: Foetal exposure during pregnancy
     Dosage: UNK, (MATERNAL DOSE: UNK)
     Route: 064
  72. CYANOCOBALAMIN [Suspect]
     Active Substance: CYANOCOBALAMIN
     Indication: Foetal exposure during pregnancy
     Dosage: UNK, (MATERNAL DOSE: UNK )
     Route: 064
  73. FOLATE SODIUM [Suspect]
     Active Substance: FOLATE SODIUM
     Indication: Foetal exposure during pregnancy
     Dosage: UNK
     Route: 064
  74. FOLATE SODIUM [Suspect]
     Active Substance: FOLATE SODIUM
     Dosage: UNK (MATERNAL DOSE: 1 DF, QD (1 TABLET/CAPSULE, DAILY))
     Route: 064
  75. FOLATE SODIUM [Suspect]
     Active Substance: FOLATE SODIUM
     Dosage: UNK
     Route: 064
  76. FOLATE SODIUM [Suspect]
     Active Substance: FOLATE SODIUM
     Dosage: UNK
     Route: 064

REACTIONS (5)
  - Hydrops foetalis [Fatal]
  - Trisomy 18 [Fatal]
  - Cleft lip and palate [Fatal]
  - Ultrasound antenatal screen [Fatal]
  - Foetal exposure during pregnancy [Fatal]

NARRATIVE: CASE EVENT DATE: 20171006
